FAERS Safety Report 5448436-4 (Version None)
Quarter: 2007Q3

REPORT INFORMATION
  Report Type: 
  Country: None (occurrence: None)
  Receive Date: 20070906
  Receipt Date: 20070828
  Transmission Date: 20080115
  Serious: Yes (Hospitalization)
  Sender: FDA-Public Use
  Company Number: 20073860

PATIENT
  Age: 31 Year
  Sex: Male

DRUGS (10)
  1. LIORESAL [Suspect]
     Indication: MUSCLE SPASTICITY
     Dosage: DAILY, INTRATHECAL
     Route: 037
  2. AUGMENTIN '125' [Concomitant]
  3. ORAL BACLOFEN [Concomitant]
  4. CLARITIN [Concomitant]
  5. CALTRATE [Concomitant]
  6. MIRALAX [Concomitant]
  7. TRILEPTAL [Concomitant]
  8. DIASTAT [Concomitant]
  9. ALBUTEROL [Concomitant]
  10. MULTI-VITAMIN [Concomitant]

REACTIONS (18)
  - AGITATION [None]
  - BLOOD COUNT ABNORMAL [None]
  - BLOOD PRESSURE INCREASED [None]
  - CHILLS [None]
  - DEHYDRATION [None]
  - DEVICE BREAKAGE [None]
  - DRUG WITHDRAWAL SYNDROME [None]
  - DYSPHAGIA [None]
  - FLAIL CHEST [None]
  - HYPERNATRAEMIA [None]
  - HYPERTONIA [None]
  - MUSCLE CONTRACTURE [None]
  - MUSCLE SPASTICITY [None]
  - PNEUMONIA [None]
  - PNEUMONIA ASPIRATION [None]
  - RHABDOMYOLYSIS [None]
  - TACHYCARDIA [None]
  - TREMOR [None]
